FAERS Safety Report 9159860 (Version 1)
Quarter: 2013Q1

REPORT INFORMATION
  Report Type: Spontaneous
  Country: GB (occurrence: None)
  Receive Date: 20130214
  Receipt Date: 20130214
  Transmission Date: 20140127
  Serious: Yes (Other)
  Sender: FDA-Public Use
  Company Number: 2013-0211

PATIENT
  Age: 68 Year
  Sex: Female
  Weight: 96 kg

DRUGS (3)
  1. SOMATULINE [Suspect]
     Indication: ACROMEGALY
     Dosage: 120 MG (120 MG, 1 IN 6 WK)
  2. AMLODIPINE (AMLODIPINE) [Concomitant]
  3. VISCOTEARS (CARBOMER) [Concomitant]

REACTIONS (2)
  - Cystitis [None]
  - Incorrect route of drug administration [None]
